FAERS Safety Report 5617180-2 (Version None)
Quarter: 2008Q1

REPORT INFORMATION
  Report Type: 
  Country: None (occurrence: None)
  Receive Date: 20080206
  Receipt Date: 20080206
  Transmission Date: 20080703
  Serious: Yes (Other)
  Sender: FDA-Public Use
  Company Number: None

PATIENT
  Sex: Male
  Weight: 29.9 kg

DRUGS (5)
  1. HEPARIN [Suspect]
     Indication: HAEMODIALYSIS
     Dosage: 1500 UNITS 1 TIME HEMODYALIS; 1 DOSE
     Route: 010
     Dates: start: 20080201, end: 20080201
  2. NS [Concomitant]
  3. ONDANSETRON [Concomitant]
  4. PARICALCITOL [Concomitant]
  5. PANTOPRAZOLE [Concomitant]

REACTIONS (1)
  - URTICARIA [None]
